FAERS Safety Report 4370137-4 (Version None)
Quarter: 2004Q2

REPORT INFORMATION
  Report Type: 
  Country: None (occurrence: None)
  Receive Date: 20040603
  Receipt Date: 20040421
  Transmission Date: 20050107
  Serious: No
  Sender: FDA-Public Use
  Company Number: US-BRISTOL-MYERS SQUIBB COMPANY-12566568

PATIENT
  Age: 44 Year
  Sex: Female

DRUGS (8)
  1. ABILIFY [Suspect]
     Indication: SCHIZOPHRENIA
     Route: 048
  2. VALIUM [Interacting]
  3. TOPAMAX [Interacting]
  4. CLOZARIL [Interacting]
  5. LIPITOR [Interacting]
  6. INDERAL [Interacting]
  7. PROGESTERONE [Interacting]
  8. WELCHOL [Interacting]

REACTIONS (4)
  - ABNORMAL BEHAVIOUR [None]
  - DRUG INTERACTION [None]
  - EYE MOVEMENT DISORDER [None]
  - SOLILOQUY [None]
